FAERS Safety Report 8215056-8 (Version None)
Quarter: 2012Q1

REPORT INFORMATION
  Report Type: 
  Country: None (occurrence: None)
  Receive Date: 20120316
  Receipt Date: 20120306
  Transmission Date: 20120608
  Serious: Yes (Hospitalization, Other)
  Sender: FDA-Public Use
  Company Number: DE-ELI_LILLY_AND_COMPANY-DE201112007412

PATIENT
  Age: 76 Year
  Sex: Female

DRUGS (5)
  1. TRAMADOL HYDROCHLORIDE [Concomitant]
  2. ASPIRIN [Concomitant]
  3. FORTEO [Suspect]
     Indication: OSTEOPOROSIS
     Dosage: UNK
     Route: 058
     Dates: start: 20111123
  4. OMEPRAZOLE [Concomitant]
  5. MAGNESIUM VERLA                    /02088501/ [Concomitant]

REACTIONS (6)
  - MULTIPLE MYELOMA [None]
  - NAUSEA [None]
  - DECREASED APPETITE [None]
  - NASOPHARYNGITIS [None]
  - VOMITING [None]
  - COUGH [None]
